FAERS Safety Report 9658063 (Version 1)
Quarter: 2013Q4

REPORT INFORMATION
  Report Type: Spontaneous
  Country: BR (occurrence: BR)
  Receive Date: 20131030
  Receipt Date: 20131030
  Transmission Date: 20140711
  Serious: Yes (Hospitalization, Other)
  Sender: FDA-Public Use
  Company Number: BR-BRISTOL-MYERS SQUIBB COMPANY-19646835

PATIENT
  Age: 58 Year
  Sex: Male

DRUGS (2)
  1. KOMBIGLYZE XR [Suspect]
     Dosage: 1DF: 1TAB,1 TAB AT LUNCH AND 1 TAB AT DINNER
     Route: 048
     Dates: start: 201305
  2. SIMVASTATIN [Concomitant]

REACTIONS (2)
  - Leukaemia [Unknown]
  - Off label use [Unknown]
